FAERS Safety Report 8202629-1 (Version None)
Quarter: 2012Q1

REPORT INFORMATION
  Report Type: 
  Country: None (occurrence: None)
  Receive Date: 20120312
  Receipt Date: 20120310
  Transmission Date: 20120608
  Serious: No
  Sender: FDA-Public Use
  Company Number: US-PFIZER INC-2012063727

PATIENT
  Sex: Male

DRUGS (2)
  1. ADVIL MIGRAINE LIQUI-GELS [Suspect]
     Dosage: TWO CAPSULES
  2. ADVIL MIGRAINE LIQUI-GELS [Suspect]
     Dosage: UNK
     Route: 048

REACTIONS (1)
  - VOMITING [None]
